FAERS Safety Report 5225388-3 (Version None)
Quarter: 2007Q1

REPORT INFORMATION
  Report Type: 
  Country: None (occurrence: None)
  Receive Date: 20070131
  Receipt Date: 20070126
  Transmission Date: 20070707
  Serious: Yes (Other)
  Sender: FDA-Public Use
  Company Number: AU-SHR-AU-2006-023620

PATIENT
  Sex: Female

DRUGS (1)
  1. SOTALOL HYDROCHLORIDE [Suspect]
     Route: 048

REACTIONS (5)
  - ALOPECIA [None]
  - ATRIAL FIBRILLATION [None]
  - NAUSEA [None]
  - ONYCHOCLASIS [None]
  - VOMITING [None]
